FAERS Safety Report 23839781 (Version 4)
Quarter: 2024Q3

REPORT INFORMATION
  Report Type: Spontaneous
  Country: US (occurrence: None)
  Receive Date: 20240510
  Receipt Date: 20240715
  Transmission Date: 20241016
  Serious: No
  Sender: ASTRAZENECA
  Company Number: 2024A107811

PATIENT
  Sex: Male

DRUGS (1)
  1. BREZTRI [Suspect]
     Active Substance: BUDESONIDE\FORMOTEROL\GLYCOPYRROLATE
     Route: 055
     Dates: start: 2024

REACTIONS (9)
  - Illness [Unknown]
  - Irregular breathing [Unknown]
  - Gait disturbance [Unknown]
  - Drug dose omission by device [Unknown]
  - Wrong technique in product usage process [Unknown]
  - Device leakage [Unknown]
  - Incorrect dose administered [Unknown]
  - Dyspnoea [Unknown]
  - Underdose [Unknown]
